FAERS Safety Report 19352057 (Version 1)
Quarter: 2021Q2

REPORT INFORMATION
  Report Type: Report from Study
  Country: IN (occurrence: IN)
  Receive Date: 20210601
  Receipt Date: 20210601
  Transmission Date: 20210717
  Serious: Yes (Hospitalization)
  Sender: FDA-Public Use
  Company Number: NVSC2021IN117381

PATIENT
  Age: 21 Year
  Sex: Male

DRUGS (1)
  1. RYVERNA [CRIZANLIZUMAB] [Suspect]
     Active Substance: CRIZANLIZUMAB
     Indication: SICKLE CELL DISEASE
     Dosage: 230 MG
     Route: 042
     Dates: start: 20210310

REACTIONS (1)
  - COVID-19 [Unknown]
